FAERS Safety Report 23315486 (Version 1)
Quarter: 2023Q4

REPORT INFORMATION
  Report Type: Spontaneous
  Country: US (occurrence: US)
  Receive Date: 20231219
  Receipt Date: 20231219
  Transmission Date: 20240109
  Serious: Yes (Other)
  Sender: FDA-Public Use
  Company Number: US-ORG100016242-2023000114

PATIENT

DRUGS (1)
  1. EXPAREL [Suspect]
     Active Substance: BUPIVACAINE
     Indication: Oral surgery
     Route: 042

REACTIONS (3)
  - Seizure [Unknown]
  - Off label use [Unknown]
  - Wrong product administered [Unknown]
